FAERS Safety Report 11457310 (Version 2)
Quarter: 2021Q1

REPORT INFORMATION
  Report Type: Spontaneous
  Country: CA (occurrence: CA)
  Receive Date: 20150904
  Receipt Date: 20210123
  Transmission Date: 20210419
  Serious: Yes (Hospitalization)
  Sender: FDA-Public Use
  Company Number: CA-ROCHE-1624902

PATIENT
  Age: 43 Year
  Sex: Female

DRUGS (20)
  1. DECADRON [Concomitant]
     Active Substance: DEXAMETHASONE
  2. STEMETIL [Concomitant]
     Active Substance: PROCHLORPERAZINE
  3. HERCEPTIN [Suspect]
     Active Substance: TRASTUZUMAB
     Indication: BREAST CANCER
     Dosage: FREQUENCY + THERAPY DURATION: ONCE, VIALS
     Route: 042
  4. HERCEPTIN [Suspect]
     Active Substance: TRASTUZUMAB
     Dosage: THERAPY DURATION: 1 DAY?VIALS; POWDER FOR SOLUTION INTRAVENOUS
     Route: 042
  5. TRASTUZUMAB. [Suspect]
     Active Substance: TRASTUZUMAB
     Indication: BREAST CANCER
     Dosage: CYCLICAL
     Route: 041
  6. PERJETA [Suspect]
     Active Substance: PERTUZUMAB
     Dosage: THERAPY DURATION: 1 DAY?14ML VIAL ? CONCENTRATE SOLUTION
     Route: 042
  7. CARBOPLATIN. [Suspect]
     Active Substance: CARBOPLATIN
     Indication: BREAST CANCER
     Dosage: THERAPY DURATION: 89 DAYS
     Route: 042
  8. ATIVAN [Concomitant]
     Active Substance: LORAZEPAM
  9. CARBOPLATIN. [Suspect]
     Active Substance: CARBOPLATIN
     Dosage: THERAPY DURATION: 1 DAY
     Route: 042
  10. IMODIUM [Concomitant]
     Active Substance: LOPERAMIDE HYDROCHLORIDE
  11. ACETAMINOPHEN. [Concomitant]
     Active Substance: ACETAMINOPHEN
  12. PERJETA [Suspect]
     Active Substance: PERTUZUMAB
     Indication: BREAST CANCER
     Dosage: FREQUENCY + THERAPY DURATION: ONCE?14ML VIAL ? CONCENTRATE SOLUTION
     Route: 042
  13. BENADRYL [Concomitant]
     Active Substance: DIPHENHYDRAMINE HYDROCHLORIDE
  14. DOMPERIDONE [Concomitant]
     Active Substance: DOMPERIDONE
  15. EMEND [Concomitant]
     Active Substance: APREPITANT
  16. PANTOLOC [Concomitant]
     Active Substance: PANTOPRAZOLE SODIUM
     Dosage: TABLET (ENTERIC?COATED)
  17. TYLENOL [Concomitant]
     Active Substance: ACETAMINOPHEN
  18. DOCETAXEL. [Suspect]
     Active Substance: DOCETAXEL
     Indication: BREAST CANCER
     Dosage: THERAPY DURATION: 1 DAY
     Route: 042
  19. CIPROFLOXACIN. [Concomitant]
     Active Substance: CIPROFLOXACIN
  20. ZOFRAN [Concomitant]
     Active Substance: ONDANSETRON HYDROCHLORIDE

REACTIONS (2)
  - Febrile neutropenia [Recovered/Resolved]
  - Pneumonia [Recovered/Resolved]
